FAERS Safety Report 7546826-7 (Version None)
Quarter: 2011Q2

REPORT INFORMATION
  Report Type: 
  Country: None (occurrence: None)
  Receive Date: 20110607
  Receipt Date: 20110523
  Transmission Date: 20111010
  Serious: Yes (Life-Threatening, Hospitalization, Other)
  Sender: FDA-Public Use
  Company Number: 2011MA006333

PATIENT
  Age: 23 Year
  Sex: Male

DRUGS (2)
  1. FAMOTIDINE [Suspect]
     Indication: VARICOCELE
     Dosage: 20 MG;IV
     Route: 042
  2. CEFAZEDONE [Concomitant]

REACTIONS (7)
  - ANAPHYLACTIC REACTION [None]
  - CARDIAC ARREST [None]
  - CONVULSION [None]
  - DYSPNOEA [None]
  - ATRIOVENTRICULAR BLOCK [None]
  - COMA [None]
  - LONG QT SYNDROME [None]
